FAERS Safety Report 4533057-8 (Version None)
Quarter: 2004Q4

REPORT INFORMATION
  Report Type: 
  Country: None (occurrence: None)
  Receive Date: 20041221
  Receipt Date: 20041019
  Transmission Date: 20050328
  Serious: Yes (Death, Hospitalization)
  Sender: FDA-Public Use
  Company Number: 200418041US

PATIENT
  Sex: Female
  Weight: 204.5 kg

DRUGS (3)
  1. LOVENOX [Suspect]
     Indication: DEEP VEIN THROMBOSIS
     Dosage: DOSE: 1 MG/KG (170 MG)
     Dates: start: 20041011, end: 20041011
  2. LOVENOX [Suspect]
     Indication: PULMONARY EMBOLISM
     Dosage: DOSE: 1 MG/KG (170 MG)
     Dates: start: 20041011, end: 20041011
  3. UNKNOWN DRUG [Concomitant]
     Dosage: DOSE: UNK

REACTIONS (4)
  - HAEMATOMA [None]
  - HAEMORRHAGE [None]
  - INTRA-ABDOMINAL HAEMORRHAGE [None]
  - MEDICATION ERROR [None]
